FAERS Safety Report 11449327 (Version 1)
Quarter: 2015Q3

REPORT INFORMATION
  Report Type: Spontaneous
  Country: CA (occurrence: CA)
  Receive Date: 20150902
  Receipt Date: 20150902
  Transmission Date: 20151125
  Serious: Yes (Other)
  Sender: FDA-Public Use
  Company Number: CA-GILEAD-2015-0168776

PATIENT
  Weight: 90.7 kg

DRUGS (1)
  1. STRIBILD [Suspect]
     Active Substance: COBICISTAT\ELVITEGRAVIR\EMTRICITABINE\TENOFOVIR DISOPROXIL FUMARATE
     Indication: HIV TEST POSITIVE
     Dosage: UNK
     Route: 065
     Dates: start: 20150707, end: 20150820

REACTIONS (3)
  - Leukaemia [Unknown]
  - Anaemia [Unknown]
  - Pancytopenia [Unknown]
